FAERS Safety Report 16811514 (Version 1)
Quarter: 2019Q3

REPORT INFORMATION
  Report Type: Spontaneous
  Country: US (occurrence: US)
  Receive Date: 20190916
  Receipt Date: 20190916
  Transmission Date: 20191005
  Serious: No
  Sender: FDA-Public Use
  Company Number: US-SA-2019SA256231

PATIENT
  Age: 71 Year
  Sex: Female

DRUGS (1)
  1. LANTUS SOLOSTAR [Suspect]
     Active Substance: INSULIN GLARGINE
     Indication: DIABETES MELLITUS
     Dosage: 6 U Q AM AND 7 U Q PM
     Route: 065

REACTIONS (2)
  - Inappropriate schedule of product administration [Unknown]
  - Product contamination with body fluid [Unknown]

NARRATIVE: CASE EVENT DATE: 20190910
